FAERS Safety Report 4896510-3 (Version None)
Quarter: 2006Q1

REPORT INFORMATION
  Report Type: 
  Country: None (occurrence: None)
  Receive Date: 20060131
  Receipt Date: 20060126
  Transmission Date: 20060701
  Serious: Yes (Life-Threatening, Hospitalization, Other)
  Sender: FDA-Public Use
  Company Number: BR-GLAXOSMITHKLINE-A0591318A

PATIENT
  Age: 62 Year
  Sex: Female
  Weight: 65 kg

DRUGS (3)
  1. ANTAK [Suspect]
     Indication: GASTRITIS
     Route: 042
     Dates: start: 20060119, end: 20060119
  2. BRONDILAT [Concomitant]
     Dates: start: 20060117, end: 20060118
  3. AMOXIL [Concomitant]
     Dosage: 500MG THREE TIMES PER DAY
     Dates: start: 20060117, end: 20060118

REACTIONS (3)
  - CARDIAC ARREST [None]
  - RENAL PAIN [None]
  - TACHYCARDIA [None]
